FAERS Safety Report 4561139-3 (Version None)
Quarter: 2005Q1

REPORT INFORMATION
  Report Type: 
  Country: None (occurrence: None)
  Receive Date: 20050126
  Receipt Date: 20050124
  Transmission Date: 20050727
  Serious: Yes (Death)
  Sender: FDA-Public Use
  Company Number: PHBS2005ES01258

PATIENT
  Age: 88 Year

DRUGS (7)
  1. NITRODERM [Suspect]
     Dosage: UNK, UNK
     Dates: start: 20040419, end: 20040421
  2. DURAGESIC [Suspect]
     Dates: start: 20040419, end: 20040421
  3. SEVREDOL [Suspect]
     Dates: start: 20040419, end: 20040421
  4. OMEPRAZOLE [Suspect]
     Dates: start: 20040419, end: 20040421
  5. FUROSEMIDE [Suspect]
     Dates: start: 20040419, end: 20040421
  6. TRYPTIZOL [Suspect]
     Dates: start: 20040419, end: 20040421
  7. IBUPROFEN [Suspect]

REACTIONS (1)
  - RESPIRATORY FAILURE [None]
